FAERS Safety Report 21379576 (Version 2)
Quarter: 2022Q4

REPORT INFORMATION
  Report Type: Report from Study
  Country: BE (occurrence: BE)
  Receive Date: 20220927
  Receipt Date: 20221014
  Transmission Date: 20230112
  Serious: Yes (Hospitalization)
  Sender: FDA-Public Use
  Company Number: BE-ABBVIE-22K-013-4524594-00

PATIENT
  Age: 64 Year
  Sex: Female

DRUGS (20)
  1. CARBIDOPA\LEVODOPA [Suspect]
     Active Substance: CARBIDOPA\LEVODOPA
     Indication: Parkinson^s disease
     Dosage: MD: 5.0 ML, CD: 3.4 ML/H, AD: 3.0 ML, ED: 1.5 ML DURING 16HOURS
     Route: 050
     Dates: start: 20220527, end: 20220826
  2. CARBIDOPA\LEVODOPA [Suspect]
     Active Substance: CARBIDOPA\LEVODOPA
     Dosage: MD: 5.0 ML, CD: 3.2 ML/H, ED: 1.5 ML DURING 16 HOURS
     Route: 050
     Dates: start: 20220826, end: 20220827
  3. CARBIDOPA\LEVODOPA [Suspect]
     Active Substance: CARBIDOPA\LEVODOPA
     Dosage: MD: 5.0 ML, CD: 3.2 ML/H, ED: 1.5 ML DURING 16 HOURS
     Route: 050
     Dates: start: 20220827, end: 20220829
  4. CARBIDOPA\LEVODOPA [Suspect]
     Active Substance: CARBIDOPA\LEVODOPA
     Dosage: MD: 5.0 ML, CD: 3.4 ML/H, ED: 1.5 ML DURING 16 HOURS
     Route: 050
     Dates: start: 20220829, end: 20220901
  5. CARBIDOPA\LEVODOPA [Suspect]
     Active Substance: CARBIDOPA\LEVODOPA
     Dosage: MD: 5.0 ML, CD: 3.5 ML/H, ED: 1.5 ML DURING 16 HOURS
     Route: 050
     Dates: start: 20220901, end: 20220914
  6. CARBIDOPA\LEVODOPA [Suspect]
     Active Substance: CARBIDOPA\LEVODOPA
     Dosage: MD: 5.0 ML, CD: 3.7 ML/H, ED: 1.5 ML DURING 16 HOURS
     Route: 050
     Dates: start: 20220914, end: 20220919
  7. CARBIDOPA\LEVODOPA [Suspect]
     Active Substance: CARBIDOPA\LEVODOPA
     Dosage: MD: 5.0 ML, CD: 3.5 ML/H, ED: 1.5 ML DURING 16 HOURS
     Route: 050
     Dates: start: 20220919
  8. PRAMIPEXOLE [Concomitant]
     Active Substance: PRAMIPEXOLE
     Indication: Parkinson^s disease
     Dosage: AT 07.00, 10.00, 13.00, 16.00?0.70 MG
  9. BENSERAZIDE\LEVODOPA [Concomitant]
     Active Substance: BENSERAZIDE\LEVODOPA
     Indication: Parkinson^s disease
     Dosage: AT 07.00 AND 13.00?250 MG
  10. BENSERAZIDE\LEVODOPA [Concomitant]
     Active Substance: BENSERAZIDE\LEVODOPA
     Indication: Parkinson^s disease
     Dosage: AT 10.00, 16.00, 19.00?250 MG
  11. XADAGO [Concomitant]
     Active Substance: SAFINAMIDE MESYLATE
     Indication: Parkinson^s disease
     Dosage: TIME INTERVAL: 1 TOTAL: 100 MG
  12. BENSERAZIDE\LEVODOPA [Concomitant]
     Active Substance: BENSERAZIDE\LEVODOPA
     Indication: Parkinson^s disease
     Dosage: AT BEDTIME?125 MG
  13. OMEPRAZOLE [Concomitant]
     Active Substance: OMEPRAZOLE
     Indication: Gastric pH increased
     Dosage: IN THE MORNING AND IN THE EVENING?40 MG
  14. SPIRONOLACTONE [Concomitant]
     Active Substance: SPIRONOLACTONE
     Indication: Hypertension
     Dosage: TIME INTERVAL: 1 TOTAL: 25 MG
  15. LASIX [Concomitant]
     Active Substance: FUROSEMIDE
     Indication: Diuretic therapy
     Dosage: 40 MG
  16. PRADAXA [Concomitant]
     Active Substance: DABIGATRAN ETEXILATE MESYLATE
     Indication: Anticoagulant therapy
     Dosage: 150 MG
  17. PRADAXA [Concomitant]
     Active Substance: DABIGATRAN ETEXILATE MESYLATE
     Indication: Anticoagulant therapy
     Dosage: 150 MG
  18. Apocard retard [Concomitant]
     Indication: Cardiovascular event prophylaxis
     Dosage: AT 08.00?150 MG
  19. BISOPROLOL [Concomitant]
     Active Substance: BISOPROLOL
     Indication: Cardiac failure
     Dosage: IN THE MORNING AND IN THE EVENING?5 MG
  20. LORAZEPAM [Concomitant]
     Active Substance: LORAZEPAM
     Indication: Product used for unknown indication
     Dosage: AT 23.00?2.5 MG

REACTIONS (15)
  - Parkinson^s disease [Unknown]
  - Balance disorder [Not Recovered/Not Resolved]
  - Freezing phenomenon [Unknown]
  - Feeling abnormal [Not Recovered/Not Resolved]
  - Tremor [Unknown]
  - Gait disturbance [Not Recovered/Not Resolved]
  - Dyskinesia [Unknown]
  - Anxiety [Unknown]
  - Fall [Recovered/Resolved]
  - Mobility decreased [Unknown]
  - Fall [Recovered/Resolved]
  - Speech disorder [Unknown]
  - Hypomania [Unknown]
  - On and off phenomenon [Unknown]
  - Fall [Unknown]

NARRATIVE: CASE EVENT DATE: 20220101
